FAERS Safety Report 7573273-4 (Version None)
Quarter: 2011Q2

REPORT INFORMATION
  Report Type: 
  Country: None (occurrence: None)
  Receive Date: 20110627
  Receipt Date: 20110613
  Transmission Date: 20111010
  Serious: Yes (Other)
  Sender: FDA-Public Use
  Company Number: PHHY2011BR53820

PATIENT
  Sex: Male
  Weight: 85 kg

DRUGS (2)
  1. EXFORGE [Suspect]
     Indication: HYPERTENSION
     Dosage: 2 DF (160 MG VALSARTAN/ 5 MG AMLODIPINE) QD
     Route: 048
  2. EXFORGE [Suspect]
     Indication: HYPERTENSION
     Dosage: 1 DF (160 MG VALSARTAN/ 5 MG AMLODIPINE) QD
     Route: 048

REACTIONS (2)
  - RENAL PAIN [None]
  - DRUG DISPENSING ERROR [None]
